FAERS Safety Report 16264215 (Version 1)
Quarter: 2019Q2

REPORT INFORMATION
  Report Type: Spontaneous
  Country: US (occurrence: US)
  Receive Date: 20190502
  Receipt Date: 20190502
  Transmission Date: 20190711
  Serious: No
  Sender: FDA-Public Use
  Company Number: US-TEVA-2019-US-1044870

PATIENT
  Sex: Female

DRUGS (1)
  1. COPAXONE [Suspect]
     Active Substance: GLATIRAMER ACETATE
     Indication: MULTIPLE SCLEROSIS
     Dosage: FORM STRENGTH:UNKNOWN
     Route: 065

REACTIONS (8)
  - Anxiety [Unknown]
  - Nausea [Unknown]
  - Nervousness [Unknown]
  - Dizziness [Unknown]
  - Hot flush [Unknown]
  - Chest pain [Unknown]
  - Panic reaction [Unknown]
  - Tremor [Unknown]
